FAERS Safety Report 4880796-5 (Version None)
Quarter: 2006Q1

REPORT INFORMATION
  Report Type: 
  Country: None (occurrence: None)
  Receive Date: 20060111
  Receipt Date: 20041007
  Transmission Date: 20060701
  Serious: Yes (Death)
  Sender: FDA-Public Use
  Company Number: 2004S1000174

PATIENT
  Age: 37 Year
  Weight: 58 kg

DRUGS (3)
  1. CUBICIN [Suspect]
     Indication: ENDOCARDITIS
     Dosage: 350 MG;Q24H;IV
     Route: 042
     Dates: start: 20040701, end: 20040811
  2. VANCOMYCIN [Concomitant]
  3. PRIMAXIN [Concomitant]

REACTIONS (1)
  - HAEMORRHAGIC STROKE [None]
